FAERS Safety Report 4992383-9 (Version None)
Quarter: 2006Q2

REPORT INFORMATION
  Report Type: 
  Country: None (occurrence: None)
  Receive Date: 20060502
  Receipt Date: 20060427
  Transmission Date: 20061013
  Serious: Yes (Hospitalization)
  Sender: FDA-Public Use
  Company Number: 2005S1000251

PATIENT
  Age: 35 Year
  Sex: Male
  Weight: 86 kg

DRUGS (2)
  1. CUBICIN [Suspect]
     Indication: STAPHYLOCOCCAL OSTEOMYELITIS
     Dosage: 6 MG/KG; Q24H; IV
     Route: 042
     Dates: start: 20051111, end: 20051113
  2. VANCOMYCIN [Concomitant]

REACTIONS (6)
  - ACUTE RESPIRATORY DISTRESS SYNDROME [None]
  - CARDIOMYOPATHY ACUTE [None]
  - HYPOXIA [None]
  - LIVER FUNCTION TEST ABNORMAL [None]
  - PYREXIA [None]
  - STREPTOCOCCAL INFECTION [None]
